FAERS Safety Report 12937465 (Version 1)
Quarter: 2016Q4

REPORT INFORMATION
  Report Type: Spontaneous
  Country: US (occurrence: US)
  Receive Date: 20161114
  Receipt Date: 20161114
  Transmission Date: 20170207
  Serious: No
  Sender: FDA-Public Use
  Company Number: US-CELGENEUS-USA-2016112448

PATIENT
  Sex: Female
  Weight: 129.39 kg

DRUGS (1)
  1. OTEZLA [Suspect]
     Active Substance: APREMILAST
     Indication: PSORIASIS
     Dosage: TITRATION KIT
     Route: 048
     Dates: start: 201610

REACTIONS (4)
  - Insomnia [Unknown]
  - Depression [Unknown]
  - Memory impairment [Unknown]
  - Diarrhoea [Unknown]
